FAERS Safety Report 19354949 (Version 1)
Quarter: 2021Q2

REPORT INFORMATION
  Report Type: Spontaneous
  Country: US (occurrence: US)
  Receive Date: 20210601
  Receipt Date: 20210601
  Transmission Date: 20210717
  Serious: Yes (Other)
  Sender: FDA-Public Use
  Company Number: None

PATIENT
  Age: 21 Year
  Sex: Female
  Weight: 117.1 kg

DRUGS (1)
  1. BUDESONIDE 9MG [Suspect]
     Active Substance: BUDESONIDE
     Indication: COLITIS ULCERATIVE
     Route: 048
     Dates: start: 20191001, end: 20191101

REACTIONS (5)
  - Diarrhoea [None]
  - Colitis ulcerative [None]
  - Haematochezia [None]
  - Defaecation urgency [None]
  - Treatment failure [None]

NARRATIVE: CASE EVENT DATE: 20191101
